FAERS Safety Report 9729698 (Version 2)
Quarter: 2013Q4

REPORT INFORMATION
  Report Type: Spontaneous
  Country: US (occurrence: US)
  Receive Date: 20131204
  Receipt Date: 20131204
  Transmission Date: 20140711
  Serious: No
  Sender: FDA-Public Use
  Company Number: US-GILEAD-2009-0020991

PATIENT
  Sex: Male

DRUGS (15)
  1. LETAIRIS [Suspect]
     Indication: PULMONARY ARTERIAL HYPERTENSION
     Route: 048
     Dates: start: 20090218
  2. REVATIO [Concomitant]
  3. ASPIRIN [Concomitant]
  4. TRIAMTEREN [Concomitant]
  5. CRESTOR [Concomitant]
  6. COREG [Concomitant]
  7. DYNACIRC [Concomitant]
  8. METFORMIN [Concomitant]
  9. OMEPRAZOLE [Concomitant]
  10. FLUOXETINE [Concomitant]
  11. MIRAPEX [Concomitant]
  12. AMBIEN [Concomitant]
  13. KLORCON [Concomitant]
  14. METOCLOPRAMIDE [Concomitant]
  15. AMITIZA [Concomitant]

REACTIONS (1)
  - Hypersensitivity [Unknown]
